FAERS Safety Report 16679617 (Version 2)
Quarter: 2019Q3

REPORT INFORMATION
  Report Type: Spontaneous
  Country: JP (occurrence: JP)
  Receive Date: 20190807
  Receipt Date: 20190916
  Transmission Date: 20191004
  Serious: Yes (Hospitalization, Other)
  Sender: FDA-Public Use
  Company Number: JP-FERRINGPH-2019FE03872

PATIENT
  Age: 47 Year
  Sex: Male
  Weight: 60 kg

DRUGS (10)
  1. MOHRUS [Concomitant]
     Active Substance: KETOPROFEN
     Dosage: UNK
     Dates: start: 20181015, end: 20181214
  2. GONAX [Suspect]
     Active Substance: DEGARELIX
     Dosage: 240 MG ONCE
     Route: 058
     Dates: start: 20181214, end: 20181214
  3. PREDNISOLONE. [Concomitant]
     Active Substance: PREDNISOLONE
     Dosage: UNK
     Route: 065
     Dates: start: 20181214
  4. MYONAL                             /00287502/ [Suspect]
     Active Substance: EPERISONE HYDROCHLORIDE
     Indication: PAIN IN EXTREMITY
     Dosage: 50 MG, 3 TIMES DAILY
     Route: 048
     Dates: start: 20181015, end: 20190111
  5. LOXONIN [Suspect]
     Active Substance: LOXOPROFEN SODIUM
     Indication: PAIN IN EXTREMITY
     Dosage: 60 MG, 3 TIMES DAILY
     Route: 048
     Dates: start: 20181015, end: 20190111
  6. GONAX [Suspect]
     Active Substance: DEGARELIX
     Indication: PROSTATE CANCER
     Dosage: 80 MG, EVERY 4 WEEKS
     Route: 058
     Dates: start: 20190111
  7. LYRICA [Suspect]
     Active Substance: PREGABALIN
     Indication: PAIN IN EXTREMITY
     Dosage: 25 MG, 2 TIMES DAILY
     Route: 048
     Dates: start: 20181026, end: 20190117
  8. ZYTIGA [Concomitant]
     Active Substance: ABIRATERONE ACETATE
     Dosage: UNK
     Route: 048
     Dates: start: 20181214
  9. MUCOSTA [Suspect]
     Active Substance: REBAMIPIDE
     Indication: PAIN IN EXTREMITY
     Dosage: 100 MG, 3 TIMES DAILY
     Route: 048
  10. URSO [Concomitant]
     Active Substance: URSODIOL
     Indication: HEPATIC FUNCTION ABNORMAL
     Dosage: 100 MG, 3 TIMES DAILY
     Dates: start: 20190208, end: 20190705

REACTIONS (5)
  - Injection site erythema [Recovered/Resolved]
  - White blood cell count increased [Recovering/Resolving]
  - Drug-induced liver injury [Recovered/Resolved]
  - Injection site pain [Recovered/Resolved]
  - Vomiting [Recovered/Resolved]

NARRATIVE: CASE EVENT DATE: 20190111
